FAERS Safety Report 16884748 (Version 11)
Quarter: 2025Q1

REPORT INFORMATION
  Report Type: Spontaneous
  Country: FR (occurrence: FR)
  Receive Date: 20191004
  Receipt Date: 20250124
  Transmission Date: 20250409
  Serious: Yes (Other)
  Sender: MYLAN
  Company Number: FR-ETHYPHARM-201900954

PATIENT
  Sex: Female

DRUGS (6)
  1. TRAMADOL [Suspect]
     Active Substance: TRAMADOL
     Indication: Substance use
     Route: 065
  2. SKENAN [Suspect]
     Active Substance: MORPHINE SULFATE
     Indication: Substance use
     Route: 045
     Dates: start: 2018
  3. SKENAN [Suspect]
     Active Substance: MORPHINE SULFATE
     Route: 045
  4. CODEINE [Suspect]
     Active Substance: CODEINE
     Indication: Substance use
     Route: 065
  5. CODEINE [Suspect]
     Active Substance: CODEINE
     Route: 065
  6. MORPHINE [Suspect]
     Active Substance: MORPHINE
     Indication: Product used for unknown indication
     Route: 045

REACTIONS (26)
  - Intentional product use issue [Unknown]
  - Drug abuse [Unknown]
  - Rhinorrhoea [Unknown]
  - Feeling of body temperature change [Unknown]
  - Drug dependence [Unknown]
  - Hyperhidrosis [Unknown]
  - Diarrhoea [Unknown]
  - Tension [Unknown]
  - Drug tolerance increased [Unknown]
  - Feeling hot [Unknown]
  - Yawning [Unknown]
  - Anxiolytic therapy [Unknown]
  - Euphoric mood [Unknown]
  - Feeling abnormal [Unknown]
  - Back pain [Unknown]
  - Nightmare [Unknown]
  - Somnolence [Unknown]
  - Nausea [Unknown]
  - Vomiting [Unknown]
  - Anorgasmia [Unknown]
  - Vulvovaginal dryness [Unknown]
  - Vulvovaginal discomfort [Unknown]
  - Vulvovaginal mycotic infection [Unknown]
  - Intentional product misuse [Unknown]
  - Product storage error [Unknown]
  - Wrong technique in product usage process [Unknown]
